FAERS Safety Report 17967866 (Version 1)
Quarter: 2020Q3

REPORT INFORMATION
  Report Type: Spontaneous
  Country: ES (occurrence: ES)
  Receive Date: 20200701
  Receipt Date: 20200701
  Transmission Date: 20201103
  Serious: Yes (Hospitalization)
  Sender: FDA-Public Use
  Company Number: ES-BAUSCH-BL-2020-017972

PATIENT
  Age: 75 Year
  Sex: Male

DRUGS (10)
  1. TIAPRIZAL [Interacting]
     Active Substance: TIAPRIDE HYDROCHLORIDE
     Indication: DEPRESSION
     Dosage: 24 TABLETS
     Route: 048
     Dates: start: 20200405, end: 20200421
  2. OXCARBAZEPINA (2570A) [Concomitant]
     Active Substance: OXCARBAZEPINE
     Indication: PETIT MAL EPILEPSY
     Route: 048
     Dates: start: 201702
  3. OMEPRAZOL (2141A) [Concomitant]
     Active Substance: OMEPRAZOLE
     Indication: GASTRITIS PROPHYLAXIS
     Route: 048
     Dates: start: 2017
  4. MANIDIPINE HYDROCHLORIDE (2841DH) [Concomitant]
     Indication: HYPERTENSION
     Route: 048
     Dates: start: 2017
  5. ALOPURINOL NORMON [Concomitant]
     Active Substance: ALLOPURINOL
     Indication: HYPERURICAEMIA
     Dosage: 30 TABLETS
     Route: 048
     Dates: start: 2017
  6. DOXAZOSINA (2387A) [Concomitant]
     Active Substance: DOXAZOSIN MESYLATE
     Indication: HYPERTENSION
     Route: 048
     Dates: start: 2017
  7. ALPRAZOLAM NORMON [Interacting]
     Active Substance: ALPRAZOLAM
     Indication: DEPRESSION
     Dosage: 500 TABLETS
     Route: 048
     Dates: start: 20200324, end: 20200421
  8. FUROSEMIDA (1615A) [Concomitant]
     Active Substance: FUROSEMIDE
     Indication: CHRONIC KIDNEY DISEASE
     Route: 048
     Dates: start: 2017
  9. VENLAFAXINA [Suspect]
     Active Substance: VENLAFAXINE HYDROCHLORIDE
     Indication: DEPRESSION
     Route: 048
     Dates: start: 201902
  10. SIMVASTATINA (1023A) [Concomitant]
     Active Substance: SIMVASTATIN
     Indication: HYPERLIPIDAEMIA
     Route: 048
     Dates: start: 2017

REACTIONS (2)
  - Parkinsonism [Unknown]
  - Cognitive disorder [Unknown]

NARRATIVE: CASE EVENT DATE: 20200412
